FAERS Safety Report 6984455-4 (Version None)
Quarter: 2010Q3

REPORT INFORMATION
  Report Type: 
  Country: None (occurrence: None)
  Receive Date: 20100827
  Receipt Date: 20100510
  Transmission Date: 20110219
  Serious: No
  Sender: FDA-Public Use
  Company Number: 011612

PATIENT
  Age: 54 Year
  Sex: Female

DRUGS (1)
  1. LACOSAMIDE [Suspect]
     Dosage: (100 MG IN THE MORNING AND 150 MG EVERY OTHER DAY)

REACTIONS (1)
  - ABNORMAL BEHAVIOUR [None]
